FAERS Safety Report 9541538 (Version 1)
Quarter: 2013Q2

REPORT INFORMATION
  Report Type: Spontaneous
  Country: US (occurrence: None)
  Receive Date: 20130524
  Receipt Date: 20130524
  Transmission Date: 20140414
  Serious: Yes (Other)
  Sender: FDA-Public Use
  Company Number: PHEH2013US003110

PATIENT
  Age: 56 Year
  Sex: Male

DRUGS (2)
  1. GILENYA (FINGOLIMOD) CAPSULE, 0.5MG [Suspect]
     Indication: MULTIPLE SCLEROSIS
     Route: 048
     Dates: start: 20130204
  2. NEURONTIN (GABAPENTIN) [Concomitant]

REACTIONS (5)
  - Nausea [None]
  - Malaise [None]
  - Restlessness [None]
  - Fatigue [None]
  - Migraine [None]
